FAERS Safety Report 6284426-X (Version None)
Quarter: 2009Q3

REPORT INFORMATION
  Report Type: 
  Country: None (occurrence: None)
  Receive Date: 20090727
  Receipt Date: 20090715
  Transmission Date: 20100115
  Serious: Yes (Hospitalization)
  Sender: FDA-Public Use
  Company Number: JP-ROCHE-645383

PATIENT
  Age: 8 Year
  Sex: Male

DRUGS (1)
  1. ROCEPHIN [Suspect]
     Indication: PYREXIA
     Route: 042
     Dates: start: 20090714, end: 20090714

REACTIONS (1)
  - DYSPNOEA [None]
